FAERS Safety Report 8519325-3 (Version None)
Quarter: 2012Q3

REPORT INFORMATION
  Report Type: 
  Country: None (occurrence: None)
  Receive Date: 20120718
  Receipt Date: 20120717
  Transmission Date: 20120928
  Serious: Yes (Hospitalization, Other)
  Sender: FDA-Public Use
  Company Number: US-PFIZER INC-2012172418

PATIENT
  Sex: Male
  Weight: 74.83 kg

DRUGS (6)
  1. ADVAIR DISKUS 100/50 [Concomitant]
     Dosage: UNK,DAILY
  2. WELLBUTRIN [Concomitant]
     Dosage: 150 MG, DAILY
  3. CELEBREX [Suspect]
     Indication: ARTHRITIS
     Dosage: 200 MG, DAILY
     Route: 048
  4. COLCHICINE [Concomitant]
     Indication: GOUT
     Dosage: 0.6 MG, DAILY
  5. ACETYLSALICYLIC ACID [Concomitant]
     Dosage: 81 MG, DAILY
  6. ALLOPURINOL [Concomitant]
     Dosage: 300 MG, DAILY

REACTIONS (4)
  - CORONARY ARTERY THROMBOSIS [None]
  - BLOOD CHOLESTEROL INCREASED [None]
  - ARTERIAL DISORDER [None]
  - EPIGASTRIC DISCOMFORT [None]
